FAERS Safety Report 13076590 (Version 1)
Quarter: 2016Q4

REPORT INFORMATION
  Report Type: Spontaneous
  Country: TW (occurrence: TW)
  Receive Date: 20161230
  Receipt Date: 20161230
  Transmission Date: 20170207
  Serious: Yes (Death, Other)
  Sender: FDA-Public Use
  Company Number: TW-MYLANLABS-2016M1058016

PATIENT

DRUGS (1)
  1. DIPHENHYDRAMINE. [Suspect]
     Active Substance: DIPHENHYDRAMINE
     Indication: PRODUCT USED FOR UNKNOWN INDICATION
     Dosage: 4900 MG
     Route: 048

REACTIONS (7)
  - Bradycardia [Recovered/Resolved]
  - Hypoxic-ischaemic encephalopathy [Fatal]
  - Cardiac arrest [Fatal]
  - Intentional overdose [Fatal]
  - Toxicity to various agents [Fatal]
  - Suicide attempt [Fatal]
  - Sinus tachycardia [Unknown]
